FAERS Safety Report 5228288-8 (Version None)
Quarter: 2007Q1

REPORT INFORMATION
  Report Type: 
  Country: None (occurrence: None)
  Receive Date: 20070131
  Receipt Date: 20070115
  Transmission Date: 20070707
  Serious: Yes (Other)
  Sender: FDA-Public Use
  Company Number: ACO-0307-2007

PATIENT
  Age: 34 Year
  Sex: Male

DRUGS (3)
  1. TIZANIDINE HCL [Suspect]
     Indication: NECK PAIN
     Dosage: DF PO
     Route: 048
  2. LOXOPROFEN SODIUM [Suspect]
     Indication: NECK PAIN
     Dosage: DF
  3. ALDIOXA [Suspect]
     Indication: NECK PAIN
     Dosage: DF

REACTIONS (3)
  - LEUKOCYTOCLASTIC VASCULITIS [None]
  - LYMPHOCYTE STIMULATION TEST POSITIVE [None]
  - SCIATICA [None]
